FAERS Safety Report 24273579 (Version 1)
Quarter: 2024Q3

REPORT INFORMATION
  Report Type: Spontaneous
  Country: US (occurrence: US)
  Receive Date: 20240902
  Receipt Date: 20240902
  Transmission Date: 20241016
  Serious: Yes (Other)
  Sender: ASTELLAS
  Company Number: US-ASTELLAS-2024US012226

PATIENT
  Age: 89 Year
  Sex: Male

DRUGS (2)
  1. ENFORTUMAB VEDOTIN [Suspect]
     Active Substance: ENFORTUMAB VEDOTIN
     Indication: Transitional cell carcinoma
     Dosage: UNK, UNKNOWN FREQ. (CYCLE 1 DAY 8)
     Route: 065
     Dates: start: 20240422
  2. PEMBROLIZUMAB [Concomitant]
     Active Substance: PEMBROLIZUMAB
     Indication: Transitional cell carcinoma
     Dosage: UNK UNK, UNKNOWN FREQ. (CYCLE 1 DAY 8)
     Route: 065
     Dates: start: 20240422

REACTIONS (3)
  - Haematemesis [Unknown]
  - Diarrhoea [Unknown]
  - Rash erythematous [Unknown]
